FAERS Safety Report 24049923 (Version 1)
Quarter: 2024Q3

REPORT INFORMATION
  Report Type: Spontaneous
  Country: JP (occurrence: JP)
  Receive Date: 20240704
  Receipt Date: 20240704
  Transmission Date: 20241016
  Serious: Yes (Death, Hospitalization)
  Sender: TEVA
  Company Number: JP-TEVA-VS-3197663

PATIENT
  Age: 74 Year
  Sex: Male

DRUGS (4)
  1. MODAFINIL [Suspect]
     Active Substance: MODAFINIL
     Indication: Product used for unknown indication
     Route: 048
     Dates: start: 20240505
  2. TAMSULOSIN HYDROCHLORIDE [Concomitant]
     Active Substance: TAMSULOSIN HYDROCHLORIDE
  3. MONTELUKAST [Concomitant]
     Active Substance: MONTELUKAST SODIUM
  4. FLUTICASONE FUROATE [Concomitant]
     Active Substance: FLUTICASONE FUROATE

REACTIONS (5)
  - Duodenal perforation [Fatal]
  - Multiple fractures [Fatal]
  - Fall [Fatal]
  - Subarachnoid haemorrhage [Fatal]
  - Septic shock [Fatal]

NARRATIVE: CASE EVENT DATE: 20240505
